APPROVED DRUG PRODUCT: ANSPOR
Active Ingredient: CEPHRADINE
Strength: 250MG/5ML
Dosage Form/Route: FOR SUSPENSION;ORAL
Application: A061866 | Product #002
Applicant: GLAXOSMITHKLINE
Approved: Approved Prior to Jan 1, 1982 | RLD: No | RS: No | Type: DISCN